FAERS Safety Report 6280313-1 (Version None)
Quarter: 2009Q3

REPORT INFORMATION
  Report Type: 
  Country: None (occurrence: None)
  Receive Date: 20090724
  Receipt Date: 20071026
  Transmission Date: 20100115
  Serious: Yes (Hospitalization, Other)
  Sender: FDA-Public Use
  Company Number: US-ASTRAZENECA-2007UW06079

PATIENT
  Age: 12762 Day
  Sex: Female
  Weight: 102.1 kg

DRUGS (6)
  1. SEROQUEL [Suspect]
     Indication: DEPRESSION
     Route: 048
     Dates: start: 20000401, end: 20060329
  2. SEROQUEL [Suspect]
     Route: 048
     Dates: start: 20051224
  3. ZANTAC [Concomitant]
     Dates: start: 20040217
  4. TRAZODONE [Concomitant]
     Dates: start: 20040926
  5. ZOLOFT [Concomitant]
     Route: 048
     Dates: start: 20020716
  6. MOTRIN [Concomitant]
     Route: 048
     Dates: start: 20060219

REACTIONS (3)
  - PANCREATITIS [None]
  - PANCREATITIS ACUTE [None]
  - PANCREATITIS CHRONIC [None]
